FAERS Safety Report 13629437 (Version 4)
Quarter: 2017Q4

REPORT INFORMATION
  Report Type: Report from Study
  Country: CH (occurrence: CH)
  Receive Date: 20170608
  Receipt Date: 20171107
  Transmission Date: 20180320
  Serious: Yes (Death, Life-Threatening, Hospitalization)
  Sender: FDA-Public Use
  Company Number: CH-JNJFOC-20170603153

PATIENT
  Age: 70 Year
  Sex: Male

DRUGS (3)
  1. IBRUTINIB [Suspect]
     Active Substance: IBRUTINIB
     Indication: MYELODYSPLASTIC SYNDROME
     Route: 048
     Dates: start: 20170503, end: 20170505
  2. IBRUTINIB [Suspect]
     Active Substance: IBRUTINIB
     Indication: MYELODYSPLASTIC SYNDROME
     Route: 048
     Dates: start: 20170516, end: 20170524
  3. DECITABINE. [Suspect]
     Active Substance: DECITABINE
     Indication: MYELODYSPLASTIC SYNDROME
     Route: 042
     Dates: start: 20170506

REACTIONS (1)
  - Subdural haemorrhage [Not Recovered/Not Resolved]

NARRATIVE: CASE EVENT DATE: 20170603
